FAERS Safety Report 9357013 (Version 1)
Quarter: 2013Q2

REPORT INFORMATION
  Report Type: Spontaneous
  Country: JP (occurrence: JP)
  Receive Date: 20130620
  Receipt Date: 20130620
  Transmission Date: 20140414
  Serious: Yes (Other)
  Sender: FDA-Public Use
  Company Number: JP-ROCHE-1227094

PATIENT
  Age: 69 Year
  Sex: Female

DRUGS (9)
  1. CELLCEPT [Suspect]
     Indication: PROPHYLAXIS AGAINST GRAFT VERSUS HOST DISEASE
     Route: 048
  2. CELLCEPT [Suspect]
     Indication: OFF LABEL USE
  3. FLUDARABINE PHOSPHATE [Concomitant]
     Indication: ACUTE MYELOID LEUKAEMIA
     Route: 065
  4. MELPHALAN [Concomitant]
     Indication: ACUTE MYELOID LEUKAEMIA
     Route: 065
  5. CYTARABINE [Concomitant]
     Indication: ACUTE MYELOID LEUKAEMIA
     Dosage: DOSAGE IS UNCERTAIN.
     Route: 065
  6. TACROLIMUS HYDRATE [Concomitant]
     Indication: PROPHYLAXIS AGAINST GRAFT VERSUS HOST DISEASE
     Dosage: DOSAGE IS UNCERTAIN.
     Route: 065
  7. VORICONAZOLE [Concomitant]
     Indication: FUNGAL INFECTION
     Dosage: DOSAGE IS UNCERTAIN.
     Route: 065
  8. ACICLOVIR [Concomitant]
     Dosage: DOSAGE IS UNCERTAIN.
     Route: 065
  9. FOSCARNET SODIUM [Concomitant]
     Indication: PROPHYLAXIS
     Route: 065

REACTIONS (5)
  - Pulmonary mycosis [Unknown]
  - Drug-induced liver injury [Unknown]
  - Cytomegalovirus enterocolitis [Unknown]
  - Neutrophil count decreased [Unknown]
  - Gastrointestinal disorder [Unknown]
